FAERS Safety Report 9269298 (Version 4)
Quarter: 2015Q3

REPORT INFORMATION
  Report Type: Spontaneous
  Country: US (occurrence: US)
  Receive Date: 20130503
  Receipt Date: 20150921
  Transmission Date: 20151125
  Serious: No
  Sender: FDA-Public Use
  Company Number: US-PFIZER INC-2013136933

PATIENT
  Age: 79 Year
  Sex: Male
  Weight: 88.44 kg

DRUGS (25)
  1. CALCIUM CITRATE [Concomitant]
     Active Substance: CALCIUM CITRATE
     Indication: ANDROGEN DEFICIENCY
     Dosage: 1260 MG(2X 630 MG), 2X/DAY
  2. PROPRANOLOL [Suspect]
     Active Substance: PROPRANOLOL\PROPRANOLOL HYDROCHLORIDE
     Indication: HEADACHE
     Dosage: 40 MG, 1X/DAY
  3. PROPRANOLOL [Suspect]
     Active Substance: PROPRANOLOL\PROPRANOLOL HYDROCHLORIDE
     Indication: HYPERTENSION
  4. ASPIRIN. [Concomitant]
     Active Substance: ASPIRIN
     Indication: CARDIAC DISORDER
     Dosage: 81 MG, 1X/DAY (AT BEDTIME)
  5. KELP [Concomitant]
     Active Substance: KELP
     Dosage: 600 MG, 1X/DAY (AT BREAKFAST)
     Dates: start: 201505
  6. OXYCODONE [Concomitant]
     Active Substance: OXYCODONE
     Indication: PAIN
     Dosage: 15 MG ONE AT BREAKFAST ONE AT DINNER 2 AT BEDTIME, 3X/DAY
     Dates: start: 201402
  7. PROPRANOLOL [Suspect]
     Active Substance: PROPRANOLOL\PROPRANOLOL HYDROCHLORIDE
     Indication: MIGRAINE
  8. PROPRANOLOL [Suspect]
     Active Substance: PROPRANOLOL\PROPRANOLOL HYDROCHLORIDE
     Indication: TREMOR
  9. VITAMIN D [Concomitant]
     Active Substance: CHOLECALCIFEROL
     Indication: ANDROGEN DEFICIENCY
     Dosage: 2000 IU(2X 1000 IU), 2X/DAY
  10. TIMOLOL. [Concomitant]
     Active Substance: TIMOLOL
     Indication: GLAUCOMA
     Dosage: 1 GTT, 1X/DAY (5% 1 DROP LEFT EYE IN MORNING)
     Route: 047
  11. AMITRIPTYLINE [Concomitant]
     Active Substance: AMITRIPTYLINE
     Indication: SLEEP DISORDER
     Dosage: 100 MG, 1X/DAY (AT BEDTIME)
  12. OMEPRAZOLE. [Concomitant]
     Active Substance: OMEPRAZOLE
     Indication: DYSPEPSIA
     Dosage: 40 MG, 1X/DAY
  13. LIPITOR [Concomitant]
     Active Substance: ATORVASTATIN CALCIUM
     Indication: BLOOD CHOLESTEROL ABNORMAL
     Dosage: 20 MG, 1X/DAY (AT BEDTIME)
  14. VITAMIN D3 [Concomitant]
     Active Substance: CHOLECALCIFEROL
     Dosage: 5000 IU, 1X/DAY (AT BEDTIME)
  15. LYRICA [Suspect]
     Active Substance: PREGABALIN
     Indication: LOSS OF CONSCIOUSNESS
  16. CENTRUM SILVER [Concomitant]
     Active Substance: VITAMINS
     Indication: VITAMIN SUPPLEMENTATION
     Dosage: UNK,1X/DAY
  17. STOOL SOFTENER [Concomitant]
     Active Substance: DOCUSATE CALCIUM
     Dosage: 1 DF, 3X/DAY (1 AT BREAKFAST 1 AT DINNER 1 AT BEDTIME)
  18. PROPRANOLOL [Suspect]
     Active Substance: PROPRANOLOL\PROPRANOLOL HYDROCHLORIDE
     Indication: BLOOD PRESSURE ABNORMAL
     Dosage: 10 MG, 3X/DAY (1 AT BREAKFAST 1 AT DINNER 1 AT BEDTIME)
  19. LUMIGAN [Concomitant]
     Active Substance: BIMATOPROST
     Indication: GLAUCOMA
     Dosage: 1 GTT, 1X/DAY (2.5 ML 1 DROP IN LEFT EYE AT BEDTIME)
     Route: 047
  20. WELCHOL [Concomitant]
     Active Substance: COLESEVELAM HYDROCHLORIDE
     Indication: BLOOD TRIGLYCERIDES INCREASED
     Dosage: 650 MG, 3X/DAY
     Dates: end: 201501
  21. CALCIUM CITRATE MAGNESIUM ZINC [Concomitant]
     Dosage: 1 DF, 3X/DAY (1 AT BREAKFAST 1 AT DINNER 1 AT BEDTIME)
  22. LYRICA [Suspect]
     Active Substance: PREGABALIN
     Indication: NERVOUS SYSTEM DISORDER
     Dosage: 100 MG, 2X/DAY (ONCE IN THE MORNING AND ONCE IN THE EVENING)
     Route: 048
  23. MECLIZINE [Concomitant]
     Active Substance: MECLIZINE\MECLIZINE HYDROCHLORIDE
     Indication: BALANCE DISORDER
     Dosage: 50MG (2X 25 MG) IN MORNING AND 25MG IN EVENING
     Dates: end: 201309
  24. OMEPRAZOLE. [Concomitant]
     Active Substance: OMEPRAZOLE
     Indication: GASTROOESOPHAGEAL REFLUX DISEASE
     Dosage: 40 MG, 2X/DAY
  25. RESTASIS [Concomitant]
     Active Substance: CYCLOSPORINE
     Dosage: UNK, AS NEEDED
     Dates: start: 201506

REACTIONS (3)
  - Dry skin [Not Recovered/Not Resolved]
  - Product use issue [Not Recovered/Not Resolved]
  - Pain in extremity [Unknown]
